FAERS Safety Report 23195557 (Version 2)
Quarter: 2023Q4

REPORT INFORMATION
  Report Type: Other
  Country: AU (occurrence: None)
  Receive Date: 20231117
  Receipt Date: 20231121
  Transmission Date: 20240109
  Serious: Yes (Death)
  Sender: FDA-Public Use
  Company Number: AU-ROCHE-3458719

PATIENT

DRUGS (8)
  1. MYCOPHENOLATE MOFETIL [Suspect]
     Active Substance: MYCOPHENOLATE MOFETIL
     Indication: Prophylaxis against graft versus host disease
     Dosage: IV OR ORALLY, WAS ADMINISTERED FROM DAY +5 TO DAY +35.
     Route: 065
  2. FLUDARABINE [Suspect]
     Active Substance: FLUDARABINE PHOSPHATE
     Indication: Prophylaxis against transplant rejection
     Dosage: DAYS -5, -4, -3,?AND -2
     Route: 065
  3. FLUDARABINE [Suspect]
     Active Substance: FLUDARABINE PHOSPHATE
     Dosage: DAYS -6, -5, -4, -3, AND -2,
     Route: 065
  4. BUSULFAN [Suspect]
     Active Substance: BUSULFAN
     Indication: Prophylaxis against transplant rejection
     Dosage: ON DAYS -5, -4, -3, AND -2.
     Route: 042
  5. CYCLOPHOSPHAMIDE [Suspect]
     Active Substance: CYCLOPHOSPHAMIDE
     Indication: Prophylaxis against graft versus host disease
     Dosage: ON DAYS +3 AND +4
     Route: 042
  6. CYCLOPHOSPHAMIDE [Suspect]
     Active Substance: CYCLOPHOSPHAMIDE
     Dosage: DAYS -6 AND -5, AND?TOTAL BODY IRRADIATION 200 CGY ON DAY -1
     Route: 042
  7. CYCLOSPORINE [Suspect]
     Active Substance: CYCLOSPORINE
     Indication: Prophylaxis against graft versus host disease
     Dosage: COMMENCING ON DAY +5, IV, UNTIL ENGRAFTMENT A
     Route: 065
  8. TACROLIMUS [Suspect]
     Active Substance: TACROLIMUS
     Indication: Prophylaxis against graft versus host disease
     Dosage: DIVIDED DAILY ORAL DOSES TO TARGET BLOOD LEVELS FROM 5 TO 15 NG/ML, COMMENCED ON DAY +5
     Route: 048

REACTIONS (4)
  - Infection [Fatal]
  - Epstein-Barr virus infection reactivation [Unknown]
  - Cytomegalovirus viraemia [Unknown]
  - Post transplant lymphoproliferative disorder [Unknown]
